FAERS Safety Report 25185569 (Version 3)
Quarter: 2025Q4

REPORT INFORMATION
  Report Type: Report from Study
  Country: CA (occurrence: CA)
  Receive Date: 20250410
  Receipt Date: 20251201
  Transmission Date: 20260117
  Serious: Yes (Other)
  Sender: ALEXION PHARMACEUTICALS
  Company Number: CA-AstraZeneca-CH-00841005A

PATIENT
  Sex: Female

DRUGS (11)
  1. TEZEPELUMAB [Suspect]
     Active Substance: TEZEPELUMAB
     Indication: Asthma
     Dosage: 210 MILLIGRAM
  2. TEZEPELUMAB [Suspect]
     Active Substance: TEZEPELUMAB
  3. BILASTINE [Concomitant]
     Active Substance: BILASTINE
     Dosage: CONTINUES NIGHTLY
     Route: 065
  4. OMNARIS [Concomitant]
     Active Substance: CICLESONIDE
     Dosage: CONTINUE TWICE DAILY
     Route: 065
  5. PANTOPRAZOLE [Concomitant]
     Active Substance: PANTOPRAZOLE
     Dosage: TWICE DAILY
     Route: 065
  6. SALINE [Concomitant]
     Active Substance: SODIUM CHLORIDE
     Dosage: UNK
  7. SPIRIVA RESPIMAT [Concomitant]
     Active Substance: TIOTROPIUM BROMIDE
     Dosage: UNK
     Route: 065
  8. VENTOLIN [Concomitant]
     Active Substance: ALBUTEROL SULFATE
     Dosage: 100MCG PRN
     Route: 065
  9. ZENHALE [Concomitant]
     Active Substance: FORMOTEROL FUMARATE\MOMETASONE FUROATE
     Dosage: UNK
     Route: 065
  10. PREDNISONE [Concomitant]
     Active Substance: PREDNISONE
     Dosage: 5 MILLIGRAM, QD
     Route: 065
  11. GLYCOPYRROLATE\INDACATEROL\MOMETASONE FUROATE [Concomitant]
     Active Substance: GLYCOPYRROLATE\INDACATEROL\MOMETASONE FUROATE
     Dosage: 160MCG 1 PUFF DAILY
     Route: 065

REACTIONS (12)
  - Lower respiratory tract infection [Unknown]
  - Asthma [Unknown]
  - Respiratory tract infection [Unknown]
  - Productive cough [Unknown]
  - Gastrooesophageal reflux disease [Unknown]
  - Laryngeal injury [Unknown]
  - Sinus disorder [Unknown]
  - Pharyngeal injury [Unknown]
  - Seizure [Unknown]
  - Oesophageal disorder [Unknown]
  - FEV1/FVC ratio decreased [Unknown]
  - Weight increased [Unknown]
